FAERS Safety Report 7739313-4 (Version None)
Quarter: 2011Q3

REPORT INFORMATION
  Report Type: 
  Country: None (occurrence: None)
  Receive Date: 20110909
  Receipt Date: 20110829
  Transmission Date: 20111222
  Serious: Yes (Death)
  Sender: FDA-Public Use
  Company Number: AR-GENZYME-POMP-1001610

PATIENT
  Sex: Male

DRUGS (1)
  1. MYOZYME [Suspect]
     Indication: GLYCOGEN STORAGE DISEASE TYPE II
     Dosage: 20 MG/KG, Q15D
     Route: 042
     Dates: start: 20100809, end: 20110829

REACTIONS (4)
  - PNEUMONIA ASPIRATION [None]
  - PNEUMONIA [None]
  - CARDIO-RESPIRATORY ARREST [None]
  - ASPIRATION BRONCHIAL [None]
